FAERS Safety Report 14514340 (Version 1)
Quarter: 2018Q1

REPORT INFORMATION
  Report Type: Spontaneous
  Country: US (occurrence: US)
  Receive Date: 20180209
  Receipt Date: 20180209
  Transmission Date: 20180509
  Serious: Yes (Other)
  Sender: FDA-Public Use
  Company Number: US-SHIRE-US201803050

PATIENT
  Sex: Male

DRUGS (3)
  1. FOSRENOL [Suspect]
     Active Substance: LANTHANUM CARBONATE
     Indication: PRODUCT USED FOR UNKNOWN INDICATION
     Dosage: 1000 MG, 1X/DAY:QD
     Route: 065
  2. RENVELA [Concomitant]
     Active Substance: SEVELAMER CARBONATE
     Indication: PRODUCT USED FOR UNKNOWN INDICATION
  3. FOSRENOL [Suspect]
     Active Substance: LANTHANUM CARBONATE
     Dosage: 1000 MG, 2X/DAY:BID
     Route: 065

REACTIONS (4)
  - Congenital cystic kidney disease [Unknown]
  - Blood phosphorus increased [Unknown]
  - Nausea [Unknown]
  - Renal failure [Unknown]
